FAERS Safety Report 20451727 (Version 2)
Quarter: 2022Q3

REPORT INFORMATION
  Report Type: Spontaneous
  Country: US (occurrence: US)
  Receive Date: 20220209
  Receipt Date: 20220826
  Transmission Date: 20221027
  Serious: Yes (Other)
  Sender: FDA-Public Use
  Company Number: US-GILEAD-2022-0569230

PATIENT
  Sex: Male

DRUGS (38)
  1. VIREAD [Suspect]
     Active Substance: TENOFOVIR DISOPROXIL FUMARATE
     Indication: HIV infection
     Dosage: UNK
     Route: 048
     Dates: start: 2012
  2. TRUVADA [Suspect]
     Active Substance: EMTRICITABINE\TENOFOVIR DISOPROXIL FUMARATE
     Indication: HIV infection
     Dosage: UNK
     Route: 048
     Dates: start: 2012
  3. TRUVADA [Suspect]
     Active Substance: EMTRICITABINE\TENOFOVIR DISOPROXIL FUMARATE
     Dosage: UNK
     Route: 048
     Dates: start: 2010, end: 2019
  4. DESCOVY [Concomitant]
     Active Substance: EMTRICITABINE\TENOFOVIR ALAFENAMIDE FUMARATE
  5. SYMTUZA [Concomitant]
     Active Substance: COBICISTAT\DARUNAVIR\EMTRICITABINE\TENOFOVIR ALAFENAMIDE
  6. TIVICAY [Concomitant]
     Active Substance: DOLUTEGRAVIR SODIUM
  7. PRAVASTATIN [Concomitant]
     Active Substance: PRAVASTATIN
  8. ATORVASTATIN [Concomitant]
     Active Substance: ATORVASTATIN
  9. LORATADINE [Concomitant]
     Active Substance: LORATADINE
  10. VIBERZI [Concomitant]
     Active Substance: ELUXADOLINE
  11. FARXIGA [Concomitant]
     Active Substance: DAPAGLIFLOZIN PROPANEDIOL
  12. HYDROCODONE [Concomitant]
     Active Substance: HYDROCODONE
  13. ESZOPICLONE [Concomitant]
     Active Substance: ESZOPICLONE
  14. DIVALPROEX SODIUM [Concomitant]
     Active Substance: DIVALPROEX SODIUM
  15. CLONAZEPAM [Concomitant]
     Active Substance: CLONAZEPAM
  16. SAXENDA [Concomitant]
     Active Substance: LIRAGLUTIDE
  17. AMITRIPTYLINE [Concomitant]
     Active Substance: AMITRIPTYLINE
  18. WELCHOL [Concomitant]
     Active Substance: COLESEVELAM HYDROCHLORIDE
  19. WIXELA INHUB [Concomitant]
     Active Substance: FLUTICASONE PROPIONATE\SALMETEROL XINAFOATE
  20. LOSARTAN [Concomitant]
     Active Substance: LOSARTAN
  21. FAMOTIDINE [Concomitant]
     Active Substance: FAMOTIDINE
  22. VIAGRA [Concomitant]
     Active Substance: SILDENAFIL CITRATE
  23. CIALIS [Concomitant]
     Active Substance: TADALAFIL
  24. VENTOLIN [Concomitant]
     Active Substance: ALBUTEROL SULFATE
  25. TRAZODONE [Concomitant]
     Active Substance: TRAZODONE HYDROCHLORIDE
  26. NOVOLOG [Concomitant]
     Active Substance: INSULIN ASPART
  27. NASONEX [Concomitant]
     Active Substance: MOMETASONE FUROATE
  28. TRIAMCINOLONE [Concomitant]
     Active Substance: TRIAMCINOLONE
  29. TRINTELLIX [Concomitant]
     Active Substance: VORTIOXETINE HYDROBROMIDE
  30. VYVANSE [Concomitant]
     Active Substance: LISDEXAMFETAMINE DIMESYLATE
  31. XIFAXAN [Concomitant]
     Active Substance: RIFAXIMIN
  32. VRAYLAR [Concomitant]
     Active Substance: CARIPRAZINE
  33. BUPROPION [Concomitant]
     Active Substance: BUPROPION
  34. DEPAKOTE [Concomitant]
     Active Substance: DIVALPROEX SODIUM
  35. LEVEMIR [Concomitant]
     Active Substance: INSULIN DETEMIR
  36. OZEMPIC [Concomitant]
     Active Substance: SEMAGLUTIDE
  37. LOPERAMIDE [Concomitant]
     Active Substance: LOPERAMIDE
  38. CANNABIS SATIVA FLOWERING TOP [Concomitant]
     Active Substance: CANNABIS SATIVA FLOWERING TOP

REACTIONS (13)
  - Osteoporosis [Not Recovered/Not Resolved]
  - Osteonecrosis [Not Recovered/Not Resolved]
  - Renal failure [Unknown]
  - Pain [Unknown]
  - Emotional distress [Unknown]
  - Anxiety [Unknown]
  - Anhedonia [Unknown]
  - Bone density decreased [Unknown]
  - General physical health deterioration [Not Recovered/Not Resolved]
  - Gait disturbance [Not Recovered/Not Resolved]
  - Dysstasia [Not Recovered/Not Resolved]
  - Balance disorder [Not Recovered/Not Resolved]
  - Depression [Not Recovered/Not Resolved]

NARRATIVE: CASE EVENT DATE: 20100101
